FAERS Safety Report 5319017-8 (Version None)
Quarter: 2007Q2

REPORT INFORMATION
  Report Type: 
  Country: None (occurrence: None)
  Receive Date: 20070503
  Receipt Date: 20070503
  Transmission Date: 20071010
  Serious: Yes (Hospitalization)
  Sender: FDA-Public Use
  Company Number: None

PATIENT
  Age: 88 Year
  Sex: Male

DRUGS (1)
  1. ZOSYN [Suspect]
     Indication: INFECTION
     Dosage: 3.375 GM  Q6H  IV
     Route: 042
     Dates: start: 20070303, end: 20070324

REACTIONS (1)
  - PANCYTOPENIA [None]
